FAERS Safety Report 4289765-X (Version None)
Quarter: 2004Q1

REPORT INFORMATION
  Report Type: 
  Country: None (occurrence: None)
  Receive Date: 20040206
  Receipt Date: 20040128
  Transmission Date: 20041129
  Serious: Yes (Hospitalization, Other)
  Sender: FDA-Public Use
  Company Number: CHPA2004US00560

PATIENT
  Age: 39 Year
  Sex: Male
  Weight: 95.2 kg

DRUGS (4)
  1. TRANSDERM-SCOP (NCH) (HYOSCINE HYDROBROMIDE) TRANS-THERAPEUTIC-SYSTEM [Suspect]
     Indication: MOTION SICKNESS
     Dosage: 1 PATCH, ONCE SINGLE, TRANSDERMAL
     Route: 062
     Dates: start: 20040110, end: 20040112
  2. MULTIVITAMINS (PANTHINOL, RETINOL) [Concomitant]
  3. TUMS [Concomitant]
  4. VITAMIN B12` [Concomitant]

REACTIONS (4)
  - ABNORMAL BEHAVIOUR [None]
  - BLOOD PROLACTIN INCREASED [None]
  - CONVULSION [None]
  - HALLUCINATION [None]
